FAERS Safety Report 10079154 (Version 1)
Quarter: 2014Q2

REPORT INFORMATION
  Report Type: Spontaneous
  Country: US (occurrence: None)
  Receive Date: 20140414
  Receipt Date: 20140414
  Transmission Date: 20141212
  Serious: Yes (Life-Threatening, Hospitalization)
  Sender: FDA-Public Use
  Company Number: None

PATIENT
  Age: 52 Year
  Sex: Male
  Weight: 90 kg

DRUGS (4)
  1. FECAL MICROBIOTA [Suspect]
     Indication: CLOSTRIDIUM DIFFICILE COLITIS
     Dosage: 25 ML VIA BOBHOFF TUBE
     Dates: start: 20140306
  2. VANCOMYCIN [Concomitant]
  3. IV METRONIDAZOLE [Concomitant]
  4. VANCOMYCIN ENEMAS [Concomitant]

REACTIONS (4)
  - Ileus [None]
  - Septic shock [None]
  - Blood culture positive [None]
  - Escherichia test positive [None]
